FAERS Safety Report 20680395 (Version 1)
Quarter: 2022Q2

REPORT INFORMATION
  Report Type: Spontaneous
  Country: US (occurrence: US)
  Receive Date: 20220406
  Receipt Date: 20220406
  Transmission Date: 20220720
  Serious: No
  Sender: FDA-Public Use
  Company Number: US-MYLANLABS-2022M1001131

PATIENT
  Age: 75 Year
  Sex: Female

DRUGS (1)
  1. LIDOCAINE PATCH [Suspect]
     Active Substance: LIDOCAINE
     Indication: Pain
     Dosage: 5 PERCENT, QD (ONCE FOR UP TO 12 HOURS/REMOVE AFTER 12 HOURS)
     Route: 003
     Dates: start: 20211231

REACTIONS (4)
  - Product adhesion issue [Unknown]
  - Product physical issue [Unknown]
  - Product quality issue [Unknown]
  - Off label use [Unknown]

NARRATIVE: CASE EVENT DATE: 20211231
